FAERS Safety Report 4480797-5 (Version None)
Quarter: 2004Q4

REPORT INFORMATION
  Report Type: 
  Country: None (occurrence: None)
  Receive Date: 20041019
  Receipt Date: 20041011
  Transmission Date: 20050328
  Serious: Yes (Hospitalization)
  Sender: FDA-Public Use
  Company Number: 208480

PATIENT
  Age: 49 Year
  Sex: Female
  Weight: 74.4 kg

DRUGS (14)
  1. XOLAIR [Suspect]
     Indication: ASTHMA
     Dosage: 150 MG, Q4W, SUBCUTANEOUS
     Route: 058
     Dates: start: 20040514, end: 20040909
  2. XOLAIR [Suspect]
  3. ALBUTEROL (ALBUTEROL, ALBUTEROL SULFATE) [Concomitant]
  4. SINGULAIR [Concomitant]
  5. ALBUTEROL NEBULIZER (ALBUTEROL, ALBUTEROL SULFATE) [Concomitant]
  6. OS-CAL +D (CHOLECALCIFEROL, CALCIUM NOS) [Concomitant]
  7. FOSAMAX [Concomitant]
  8. ADVAIR (FLUTICASONE PROPIONATE, SALMETEROL XINAFOATE) [Concomitant]
  9. FLONASE [Concomitant]
  10. KLOR-CON [Concomitant]
  11. COZAAR [Concomitant]
  12. HYDROCHLOROTHIAZIDE [Concomitant]
  13. ISOSORBIDE (ISOSORBIDE NOS) [Concomitant]
  14. PREDNISONE [Concomitant]

REACTIONS (2)
  - CONDITION AGGRAVATED [None]
  - SARCOIDOSIS [None]
